FAERS Safety Report 8254992-3 (Version None)
Quarter: 2012Q2

REPORT INFORMATION
  Report Type: 
  Country: None (occurrence: None)
  Receive Date: 20120403
  Receipt Date: 20120326
  Transmission Date: 20120825
  Serious: Yes (Hospitalization)
  Sender: FDA-Public Use
  Company Number: US-UCBSA-054139

PATIENT
  Age: 51 Year
  Sex: Female
  Weight: 100 kg

DRUGS (9)
  1. PROZAC [Concomitant]
     Dosage: TOTAL DAILY DOSE: 40 MG
     Route: 048
  2. DOXYCYCLINE [Concomitant]
  3. LORTAB [Concomitant]
  4. CIMZIA [Suspect]
     Indication: CROHN'S DISEASE
     Route: 058
     Dates: start: 20101117, end: 20110401
  5. DEXILANT [Concomitant]
     Dosage: TOTAL DAILY DOSE: 60 MG
     Route: 048
  6. SPIRIVA [Concomitant]
     Dosage: DAILY
     Route: 055
  7. ZOSYN [Concomitant]
     Dosage: TOTAL DAILY DOSE: 3.375 MG
     Route: 042
  8. BACTRIM DS [Concomitant]
  9. DIFLUCAN [Concomitant]
     Route: 042

REACTIONS (1)
  - DEVICE RELATED INFECTION [None]
